FAERS Safety Report 12379059 (Version 1)
Quarter: 2016Q2

REPORT INFORMATION
  Report Type: Spontaneous
  Country: US (occurrence: US)
  Receive Date: 20160517
  Receipt Date: 20160517
  Transmission Date: 20160815
  Serious: Yes (Hospitalization, Other)
  Sender: FDA-Public Use
  Company Number: ADR-2015-01076

PATIENT
  Age: 30 Year
  Sex: Male

DRUGS (6)
  1. BACLOFEN. [Suspect]
     Active Substance: BACLOFEN
     Dosage: 1981.0MCG/DAY
     Route: 037
     Dates: start: 20150528
  2. BACLOFEN. [Suspect]
     Active Substance: BACLOFEN
     Dosage: 1803.1MCG/DAY
     Route: 037
     Dates: start: 20150521
  3. COMPOUNDED BACLOFEN [Suspect]
     Active Substance: BACLOFEN
     Dosage: 1.78 MG/DAY
     Route: 037
     Dates: start: 20150526
  4. LIORESAL [Suspect]
     Active Substance: BACLOFEN
     Dosage: 1798.8MCG/DAY
     Route: 037
     Dates: start: 20150609
  5. COMPOUNDED BACLOFEN [Suspect]
     Active Substance: BACLOFEN
     Dosage: 1700 MCG/DAY
     Route: 037
  6. COMPOUNDED BACLOFEN [Suspect]
     Active Substance: BACLOFEN
     Dosage: 1798.8MCG/DAY
     Route: 037
     Dates: start: 20150529

REACTIONS (6)
  - Hypotonia [Recovered/Resolved]
  - Hallucination, visual [None]
  - Hallucination [Recovered/Resolved]
  - Agitation [Recovered/Resolved]
  - Drug withdrawal syndrome [Recovered/Resolved]
  - Muscle spasms [Recovered/Resolved]

NARRATIVE: CASE EVENT DATE: 20150523
